FAERS Safety Report 24322244 (Version 6)
Quarter: 2024Q4

REPORT INFORMATION
  Report Type: Report from Study
  Country: CA (occurrence: CA)
  Receive Date: 20240916
  Receipt Date: 20241212
  Transmission Date: 20250114
  Serious: Yes (Hospitalization, Other)
  Sender: TAKEDA
  Company Number: CA-TAKEDA-2024TUS077107

PATIENT
  Age: 71 Year
  Sex: Male

DRUGS (5)
  1. VEDOLIZUMAB [Suspect]
     Active Substance: VEDOLIZUMAB
     Indication: Colitis ulcerative
     Dosage: 300 MILLIGRAM
  2. VEDOLIZUMAB [Suspect]
     Active Substance: VEDOLIZUMAB
     Dosage: 300 MILLIGRAM
  3. VEDOLIZUMAB [Suspect]
     Active Substance: VEDOLIZUMAB
     Dosage: 300 MILLIGRAM
  4. MESALAMINE [Concomitant]
     Active Substance: MESALAMINE
     Dosage: UNK
  5. Cortiment [Concomitant]
     Dosage: UNK UNK, QD
     Dates: start: 20241008

REACTIONS (9)
  - Colitis ulcerative [Not Recovered/Not Resolved]
  - Hypokalaemia [Unknown]
  - Drug ineffective [Unknown]
  - Weight decreased [Unknown]
  - Hyponatraemia [Unknown]
  - Abdominal pain [Unknown]
  - Decreased appetite [Unknown]
  - Blood pressure increased [Unknown]
  - Flatulence [Unknown]

NARRATIVE: CASE EVENT DATE: 20240730
